FAERS Safety Report 7755379-X (Version None)
Quarter: 2011Q3

REPORT INFORMATION
  Report Type: 
  Country: None (occurrence: None)
  Receive Date: 20110916
  Receipt Date: 20110907
  Transmission Date: 20111222
  Serious: Yes (Other)
  Sender: FDA-Public Use
  Company Number: US-JNJFOC-20110807770

PATIENT
  Sex: Female
  Weight: 49.9 kg

DRUGS (7)
  1. DURAGESIC-100 [Suspect]
     Route: 062
     Dates: start: 20090101
  2. DURAGESIC-100 [Suspect]
     Route: 062
     Dates: start: 20090101, end: 20110810
  3. DURAGESIC-100 [Suspect]
     Route: 062
     Dates: start: 20090101
  4. KLONOPIN [Concomitant]
     Indication: SLEEP DISORDER THERAPY
     Dosage: AT BEDTIME
     Route: 048
  5. DURAGESIC-100 [Suspect]
     Indication: PAIN
     Route: 062
  6. MORPHINE [Concomitant]
     Indication: PAIN
     Route: 048
  7. DURAGESIC-100 [Suspect]
     Route: 062

REACTIONS (7)
  - ACTIVITIES OF DAILY LIVING IMPAIRED [None]
  - DRUG INEFFECTIVE [None]
  - CRYING [None]
  - FEELING ABNORMAL [None]
  - ANXIETY [None]
  - SUICIDAL IDEATION [None]
  - EXPIRED DRUG ADMINISTERED [None]
